FAERS Safety Report 8105665-9 (Version None)
Quarter: 2012Q1

REPORT INFORMATION
  Report Type: 
  Country: None (occurrence: None)
  Receive Date: 20120201
  Receipt Date: 20120123
  Transmission Date: 20120608
  Serious: Yes (Hospitalization)
  Sender: FDA-Public Use
  Company Number: US-CELGENEUS-163-21880-12012424

PATIENT
  Sex: Female

DRUGS (9)
  1. ENOXAPARIN [Concomitant]
     Dosage: 40MG/0.4ML
     Route: 065
     Dates: start: 20120119
  2. AMLODIPINE [Concomitant]
     Dosage: 10 MILLIGRAM
     Route: 048
     Dates: start: 20111123
  3. REVLIMID [Suspect]
     Indication: MULTIPLE MYELOMA
     Dosage: 10 MILLIGRAM
     Route: 048
     Dates: start: 20111128, end: 20120110
  4. PANTOPRAZOLE [Concomitant]
     Dosage: 20 MILLIGRAM
     Route: 048
     Dates: start: 20111123
  5. PAMIDRONATE DISODIUM [Concomitant]
     Dosage: 90/10ML
     Route: 065
     Dates: start: 20111123
  6. MULTI FOR HER [Concomitant]
     Route: 048
     Dates: start: 20111123
  7. ASPIRIN [Concomitant]
     Dosage: 81 MILLIGRAM
     Route: 048
     Dates: start: 20111123
  8. HYDROCHLOROTHIAZIDE [Concomitant]
     Dosage: 12.5 MILLIGRAM
     Route: 048
     Dates: start: 20111123
  9. ATENOLOL [Concomitant]
     Dosage: 25 MILLIGRAM
     Route: 048
     Dates: start: 20111123

REACTIONS (1)
  - ARTERIAL THROMBOSIS LIMB [None]
